FAERS Safety Report 14652487 (Version 2)
Quarter: 2018Q2

REPORT INFORMATION
  Report Type: Spontaneous
  Country: BR (occurrence: BR)
  Receive Date: 20180318
  Receipt Date: 20180504
  Transmission Date: 20180711
  Serious: Yes (Other)
  Sender: FDA-Public Use
  Company Number: BR-AMGEN-BRASP2013053342

PATIENT
  Age: 34 Year
  Sex: Male
  Weight: 56 kg

DRUGS (1)
  1. ENBREL [Suspect]
     Active Substance: ETANERCEPT
     Indication: ANKYLOSING SPONDYLITIS
     Dosage: 50 MG, 1X/WEEK
     Route: 058
     Dates: start: 201211

REACTIONS (6)
  - Haematochezia [Unknown]
  - Foreign body sensation in eyes [Unknown]
  - Abdominal distension [Not Recovered/Not Resolved]
  - Weight decreased [Not Recovered/Not Resolved]
  - Dry mouth [Unknown]
  - Pain [Unknown]

NARRATIVE: CASE EVENT DATE: 201211
